FAERS Safety Report 8490646-6 (Version None)
Quarter: 2012Q3

REPORT INFORMATION
  Report Type: 
  Country: None (occurrence: None)
  Receive Date: 20120705
  Receipt Date: 20120627
  Transmission Date: 20120928
  Serious: No
  Sender: FDA-Public Use
  Company Number: US-B.I. PHARMACEUTICALS,INC./RIDGEFIELD-2012-BP-14617BP

PATIENT
  Sex: Female

DRUGS (17)
  1. TRAMADOL HYDROCHLORIDE [Concomitant]
     Indication: PAIN
     Dosage: 50 MG
     Route: 048
  2. FERROUS SULFATE TAB [Concomitant]
     Indication: RENAL DISORDER
     Dosage: 325 MG
     Route: 048
  3. MODIFINIL [Concomitant]
     Dosage: 50 MG
     Route: 048
  4. ASPIRIN [Concomitant]
     Dosage: 81 MG
     Route: 048
  5. FUROSEMIDE [Concomitant]
     Indication: DIURETIC THERAPY
     Dosage: 60 MG
     Route: 048
  6. PANTOPRAZOLE [Concomitant]
     Dosage: 40 MG
     Route: 048
  7. SINGULAIR [Concomitant]
     Indication: DYSPNOEA
  8. LUTEIN [Concomitant]
     Indication: EYE DISORDER
     Dosage: 6 MG
  9. SPIRIVA [Suspect]
     Route: 048
     Dates: start: 20120626
  10. ZEMPLAR [Concomitant]
     Indication: RENAL DISORDER
  11. SPIRIVA [Suspect]
     Indication: CHRONIC OBSTRUCTIVE PULMONARY DISEASE
     Dosage: 18 MCG
     Route: 055
     Dates: start: 20120127
  12. LIRICA [Concomitant]
     Dosage: 150 MG
     Route: 048
  13. PRORENAL VITAMIN [Concomitant]
     Indication: RENAL DISORDER
     Route: 048
  14. ADVAIR DISKUS 100/50 [Concomitant]
     Indication: DYSPNOEA
  15. SYNTHROID [Concomitant]
     Indication: THYROID DISORDER
     Dosage: 75 MG
     Route: 048
  16. ROPINIROLE [Concomitant]
  17. BIOTIN [Concomitant]

REACTIONS (3)
  - DYSPNOEA [None]
  - INCORRECT ROUTE OF DRUG ADMINISTRATION [None]
  - CHEST PAIN [None]
